FAERS Safety Report 9326069 (Version 1)
Quarter: 2013Q2

REPORT INFORMATION
  Report Type: Spontaneous
  Country: US (occurrence: None)
  Receive Date: 20130603
  Receipt Date: 20130603
  Transmission Date: 20140414
  Serious: Yes (Other)
  Sender: FDA-Public Use
  Company Number: None

PATIENT
  Age: 65 Year
  Sex: Female
  Weight: 88.91 kg

DRUGS (2)
  1. CYMBALTA 30 MG ELI LILLY [Suspect]
     Indication: NEURALGIA
     Dosage: 1 CAPSULE QD PO , APPROX 5 YEARS
     Route: 048
     Dates: start: 20080101, end: 20130524
  2. CYMBALTA [Suspect]
     Indication: FIBROMYALGIA
     Dosage: 1 CAPSULE QD PO APPROX 5 YEARS
     Route: 048
     Dates: start: 20080101, end: 20130524

REACTIONS (17)
  - Dizziness [None]
  - Nausea [None]
  - Diarrhoea [None]
  - Ataxia [None]
  - Vertigo [None]
  - Anxiety [None]
  - Chest discomfort [None]
  - Hyperhidrosis [None]
  - Flushing [None]
  - Nightmare [None]
  - Blood pressure increased [None]
  - Activities of daily living impaired [None]
  - Impaired driving ability [None]
  - Abdominal pain [None]
  - Decreased appetite [None]
  - Weight decreased [None]
  - Drug withdrawal syndrome [None]
